FAERS Safety Report 23258475 (Version 1)
Quarter: 2023Q4

REPORT INFORMATION
  Report Type: Spontaneous
  Country: US (occurrence: None)
  Receive Date: 20231201
  Receipt Date: 20231201
  Transmission Date: 20240110
  Serious: Yes (Disabling)
  Sender: FDA-Public Use
  Company Number: None

PATIENT
  Age: 44 Year
  Sex: Female
  Weight: 50.4 kg

DRUGS (6)
  1. DICLOFENAC SODIUM [Suspect]
     Active Substance: DICLOFENAC\DICLOFENAC SODIUM
     Indication: Tendon pain
     Dosage: TWICE A DAY TOPICAL
     Route: 061
     Dates: start: 20221004, end: 20231001
  2. DICLOFENAC SODIUM [Suspect]
     Active Substance: DICLOFENAC\DICLOFENAC SODIUM
     Indication: Bursa disorder
  3. RHOFADE [Concomitant]
     Active Substance: OXYMETAZOLINE HYDROCHLORIDE
  4. FLUTICASONE [Concomitant]
     Active Substance: FLUTICASONE
  5. IPRATROPIUM [Concomitant]
     Active Substance: IPRATROPIUM
  6. VITAMINS [Concomitant]
     Active Substance: VITAMINS

REACTIONS (5)
  - Skin burning sensation [None]
  - Skin infection [None]
  - Hypersensitivity [None]
  - Toxicity to various agents [None]
  - Product formulation issue [None]

NARRATIVE: CASE EVENT DATE: 20231002
